FAERS Safety Report 21064375 (Version 2)
Quarter: 2025Q4

REPORT INFORMATION
  Report Type: Spontaneous
  Country: GB (occurrence: GB)
  Receive Date: 20220711
  Receipt Date: 20251217
  Transmission Date: 20260118
  Serious: Yes (Life-Threatening, Hospitalization, Other)
  Sender: TORRENT PHARMA INC.
  Company Number: None

PATIENT
  Age: 40 Year
  Sex: Female
  Weight: 64 kg

DRUGS (1)
  1. TOPIRAMATE [Suspect]
     Active Substance: TOPIRAMATE
     Indication: Intracranial pressure increased
     Dosage: 50MG MORNING 25MG AT NIGHT,TABLET (UNCOATED, ORAL)
     Route: 065

REACTIONS (9)
  - Suicide attempt [Unknown]
  - Depressed mood [Unknown]
  - Crying [Unknown]
  - Overdose [Unknown]
  - Hallucination, auditory [Unknown]
  - Somnolence [Unknown]
  - Impaired work ability [Unknown]
  - Feeding disorder [Unknown]
  - Diarrhoea [Unknown]

NARRATIVE: CASE EVENT DATE: 20220525
